FAERS Safety Report 9958592 (Version 1)
Quarter: 2014Q1

REPORT INFORMATION
  Report Type: Spontaneous
  Country: IT (occurrence: IT)
  Receive Date: 20140305
  Receipt Date: 20140305
  Transmission Date: 20141002
  Serious: Yes (Other)
  Sender: FDA-Public Use
  Company Number: IT-ACCORD-022165

PATIENT
  Age: 42 Year
  Sex: Female
  Weight: 47 kg

DRUGS (3)
  1. FLUOROURACIL [Suspect]
     Indication: PRODUCT USED FOR UNKNOWN INDICATION
     Route: 040
  2. OXALIPLATIN [Suspect]
     Indication: PANCREATIC CARCINOMA
     Route: 042
  3. IRINOTECAN [Concomitant]
     Route: 042

REACTIONS (4)
  - Hyperhidrosis [Recovered/Resolved]
  - Laryngospasm [Recovered/Resolved]
  - Off label use [Unknown]
  - Dyslalia [Recovered/Resolved]
